FAERS Safety Report 19442443 (Version 1)
Quarter: 2021Q2

REPORT INFORMATION
  Report Type: Spontaneous
  Country: US (occurrence: US)
  Receive Date: 20210621
  Receipt Date: 20210621
  Transmission Date: 20210717
  Serious: No
  Sender: FDA-Public Use
  Company Number: US-PFIZER INC-2021322710

PATIENT
  Sex: Female

DRUGS (3)
  1. PREGABALIN. [Suspect]
     Active Substance: PREGABALIN
     Indication: PAIN
  2. PREGABALIN. [Suspect]
     Active Substance: PREGABALIN
     Indication: PRURITUS
  3. PREGABALIN. [Suspect]
     Active Substance: PREGABALIN
     Indication: HERPES ZOSTER
     Dosage: UNK

REACTIONS (2)
  - Therapy non-responder [Unknown]
  - Insomnia [Unknown]
